FAERS Safety Report 4757599-5 (Version None)
Quarter: 2005Q3

REPORT INFORMATION
  Report Type: 
  Country: None (occurrence: None)
  Receive Date: 20050831
  Receipt Date: 20050701
  Transmission Date: 20060218
  Serious: Yes (Other)
  Sender: FDA-Public Use
  Company Number: 2005PK01130

PATIENT
  Age: 8028 Day
  Sex: Female
  Weight: 55 kg

DRUGS (4)
  1. SEROQUEL [Suspect]
     Indication: PSYCHOTIC DISORDER
     Dosage: 100 MG TO 800 MG
     Route: 048
     Dates: start: 20050531, end: 20050628
  2. RISPERDAL [Suspect]
     Indication: PSYCHOTIC DISORDER
     Dosage: 2 MG TO 4 MG
     Route: 048
     Dates: start: 20050526, end: 20050604
  3. SOLIAN [Suspect]
     Indication: PSYCHOTIC DISORDER
     Dosage: 100 MG TO 400 MG
     Route: 048
     Dates: start: 20050623, end: 20050805
  4. ABILIFY [Suspect]
     Indication: PSYCHOTIC DISORDER
     Route: 048
     Dates: start: 20050705

REACTIONS (1)
  - LEUKOPENIA [None]
